FAERS Safety Report 10553130 (Version 4)
Quarter: 2015Q2

REPORT INFORMATION
  Report Type: Spontaneous
  Country: JP (occurrence: JP)
  Receive Date: 20141030
  Receipt Date: 20150521
  Transmission Date: 20150821
  Serious: Yes (Other)
  Sender: FDA-Public Use
  Company Number: JP-ROCHE-1480270

PATIENT
  Age: 65 Year
  Sex: Male

DRUGS (1)
  1. AVASTIN [Suspect]
     Active Substance: BEVACIZUMAB
     Indication: DIABETIC RETINOPATHY
     Dosage: DOSE OF 1.25 MG/0.05 ML?OTHER PURPOSES: RUBEOTIC GLAUCOMA
     Route: 050

REACTIONS (2)
  - Ileus paralytic [Recovering/Resolving]
  - Product use issue [Unknown]
